FAERS Safety Report 23116438 (Version 1)
Quarter: 2023Q4

REPORT INFORMATION
  Report Type: Spontaneous
  Country: US (occurrence: None)
  Receive Date: 20231027
  Receipt Date: 20231027
  Transmission Date: 20240109
  Serious: Yes (Life-Threatening, Hospitalization, Disabling, Other)
  Sender: FDA-Public Use
  Company Number: None

PATIENT
  Age: 68 Year
  Sex: 0

DRUGS (1)
  1. LUCENTIS [Suspect]
     Active Substance: RANIBIZUMAB

REACTIONS (3)
  - Blindness unilateral [None]
  - Transient ischaemic attack [None]
  - Seizure [None]

NARRATIVE: CASE EVENT DATE: 20231020
